FAERS Safety Report 17790527 (Version 7)
Quarter: 2020Q3

REPORT INFORMATION
  Report Type: Spontaneous
  Country: TW (occurrence: TW)
  Receive Date: 20200514
  Receipt Date: 20200807
  Transmission Date: 20201102
  Serious: Yes (Hospitalization, Other)
  Sender: FDA-Public Use
  Company Number: TW-ELI_LILLY_AND_COMPANY-TW202005002105

PATIENT
  Age: 49 Year
  Sex: Male

DRUGS (15)
  1. TALTZ [Suspect]
     Active Substance: IXEKIZUMAB
     Indication: PSORIATIC ARTHROPATHY
     Dosage: 80 MG, WEEKLY (1/W)
     Route: 058
     Dates: start: 20200407
  2. UFORMIN [Concomitant]
     Indication: PRODUCT USED FOR UNKNOWN INDICATION
     Dosage: 500 MG, BID
  3. TAKEPRON [Concomitant]
     Active Substance: LANSOPRAZOLE
     Indication: PRODUCT USED FOR UNKNOWN INDICATION
     Dosage: 30 MG, BID
  4. GLUCOMET PLUS [Concomitant]
     Active Substance: GLYBURIDE\METFORMIN
     Indication: PRODUCT USED FOR UNKNOWN INDICATION
     Dosage: 1 DOSAGE FORM, DAILY
  5. NORVASC [Concomitant]
     Active Substance: AMLODIPINE BESYLATE
     Indication: PRODUCT USED FOR UNKNOWN INDICATION
     Dosage: 5 MG, BID
  6. NEOTIGASON [Concomitant]
     Active Substance: ACITRETIN
     Indication: PRODUCT USED FOR UNKNOWN INDICATION
     Dosage: 25 MG, DAILY
  7. TALTZ [Suspect]
     Active Substance: IXEKIZUMAB
     Dosage: 160 MG, MONTHLY (1/M)
     Route: 058
     Dates: start: 20200407
  8. PADALIN [Concomitant]
     Indication: PRODUCT USED FOR UNKNOWN INDICATION
     Dosage: 100 MG, BID
  9. VIMAX [CLOBETASOL PROPIONATE] [Concomitant]
     Indication: PRODUCT USED FOR UNKNOWN INDICATION
     Dosage: 25 ML, PRN
  10. TREXAN NEO [Concomitant]
     Indication: PRODUCT USED FOR UNKNOWN INDICATION
     Dosage: 2.5 MG, 3/W
  11. ARCOXIA [Concomitant]
     Active Substance: ETORICOXIB
     Indication: PRODUCT USED FOR UNKNOWN INDICATION
     Dosage: 60 MG, DAILY
  12. FEBURIC [Concomitant]
     Active Substance: FEBUXOSTAT
     Indication: PRODUCT USED FOR UNKNOWN INDICATION
     Dosage: 80 MG, DAILY
  13. XAMIOL [BETAMETHASONE DIPROPIONATE;CALCIPOTRI [Concomitant]
     Indication: PRODUCT USED FOR UNKNOWN INDICATION
     Dosage: 30 G/BOT 1 MG, PRN
  14. JARDIANCE [Concomitant]
     Active Substance: EMPAGLIFLOZIN
     Indication: PRODUCT USED FOR UNKNOWN INDICATION
     Dosage: 25 MG, DAILY
     Route: 065
  15. DONISON [Concomitant]
     Indication: PRODUCT USED FOR UNKNOWN INDICATION
     Dosage: 5 MG, DAILY

REACTIONS (21)
  - Urinary tract infection [Unknown]
  - Eye pain [Unknown]
  - Bronchitis [Unknown]
  - Cystitis [Unknown]
  - Headache [Unknown]
  - Abdominal abscess [Recovered/Resolved]
  - Cholelithiasis [Recovered/Resolved]
  - Neuralgia [Unknown]
  - Renal cyst [Unknown]
  - Psoriatic arthropathy [Unknown]
  - Mental impairment [Unknown]
  - Inappropriate schedule of product administration [Recovered/Resolved]
  - Haematuria [Recovering/Resolving]
  - Nephrolithiasis [Unknown]
  - Diverticulitis [Recovering/Resolving]
  - Pancreatitis chronic [Recovered/Resolved]
  - Cough [Unknown]
  - Tinea infection [Unknown]
  - Splenomegaly [Recovered/Resolved]
  - Dysuria [Unknown]
  - Stress [Unknown]

NARRATIVE: CASE EVENT DATE: 20200407
